FAERS Safety Report 7689701-X (Version None)
Quarter: 2011Q3

REPORT INFORMATION
  Report Type: 
  Country: None (occurrence: None)
  Receive Date: 20110817
  Receipt Date: 20110805
  Transmission Date: 20111222
  Serious: Yes (Hospitalization)
  Sender: FDA-Public Use
  Company Number: US-ASTRAZENECA-2011SE47274

PATIENT
  Age: 18911 Day
  Sex: Female

DRUGS (7)
  1. NEXIUM [Suspect]
     Dosage: 40 MG QAM AND 80 MG HS
     Route: 048
  2. NEXIUM [Suspect]
     Indication: VOMITING
     Route: 048
     Dates: start: 20110501
  3. NEXIUM [Suspect]
     Dosage: 40 MG QAM AND 80 MG HS
     Route: 048
  4. NAPROSYN [Concomitant]
     Dosage: BID FREQUENCY
     Dates: end: 19980101
  5. METHOTREXATE [Concomitant]
     Dosage: WEEKLY FREQUENCY
     Dates: end: 19980101
  6. NEXIUM [Suspect]
     Indication: ABDOMINAL PAIN UPPER
     Route: 048
     Dates: start: 20110501
  7. ENBREL [Concomitant]
     Dosage: WEEKLY FREQUENCY
     Dates: end: 19980101

REACTIONS (2)
  - HELICOBACTER GASTRITIS [None]
  - INCORRECT DOSE ADMINISTERED [None]
